FAERS Safety Report 19659398 (Version 3)
Quarter: 2021Q4

REPORT INFORMATION
  Report Type: Report from Study
  Country: US (occurrence: None)
  Receive Date: 20210805
  Receipt Date: 20211209
  Transmission Date: 20220303
  Serious: Yes (Death, Life-Threatening, Hospitalization, Other)
  Sender: FDA-Public Use
  Company Number: US-ROCHE-2879828

PATIENT
  Age: 52 Year
  Sex: Male
  Weight: 109.4 kg

DRUGS (13)
  1. VENETOCLAX [Suspect]
     Active Substance: VENETOCLAX
     Indication: Chronic lymphocytic leukaemia
     Dosage: ON 06/JUL/2021, HE RECEIVED LAST DOSE OF VENETOCLAX.
     Route: 048
     Dates: start: 20200715
  2. VENETOCLAX [Suspect]
     Active Substance: VENETOCLAX
     Route: 048
     Dates: start: 20200715
  3. VENETOCLAX [Suspect]
     Active Substance: VENETOCLAX
     Route: 048
  4. VENETOCLAX [Suspect]
     Active Substance: VENETOCLAX
     Route: 048
  5. VENETOCLAX [Suspect]
     Active Substance: VENETOCLAX
     Route: 048
  6. VENETOCLAX [Suspect]
     Active Substance: VENETOCLAX
     Route: 048
  7. OBINUTUZUMAB [Suspect]
     Active Substance: OBINUTUZUMAB
     Indication: Chronic lymphocytic leukaemia
     Dosage: ON 04/DEC/2020, HE RECEIVED OBINUTUZUMAB. ON 06/JUL/2021, LAST DOSE OF OBINUTUZUMAB?1000 MG IV ON DA
     Route: 042
     Dates: start: 20200715
  8. OBINUTUZUMAB [Suspect]
     Active Substance: OBINUTUZUMAB
     Dosage: ON DAY 2, CYCLE 1
     Route: 042
  9. OBINUTUZUMAB [Suspect]
     Active Substance: OBINUTUZUMAB
     Dosage: ON DAY 1, CYCLE 1
     Route: 042
  10. IBRUTINIB [Suspect]
     Active Substance: IBRUTINIB
     Indication: Chronic lymphocytic leukaemia
     Dosage: ON 06/JUL/2021, HE RECEIVED LAST DOSE OF IBRUTINIB. ?PT DID NOT RETURN PILL CALENDAR SO CAN ONLY ASS
     Route: 048
     Dates: start: 20200715
  11. IBRUTINIB [Suspect]
     Active Substance: IBRUTINIB
     Dosage: ON DAYS 1-28, CYCLES 1-19
     Route: 048
  12. REMDESIVIR [Concomitant]
     Active Substance: REMDESIVIR
  13. DEXAMETHASONE [Concomitant]
     Active Substance: DEXAMETHASONE

REACTIONS (3)
  - COVID-19 pneumonia [Fatal]
  - Respiratory failure [Unknown]
  - Hypoxia [Unknown]

NARRATIVE: CASE EVENT DATE: 20210707
